FAERS Safety Report 5469126-8 (Version None)
Quarter: 2007Q3

REPORT INFORMATION
  Report Type: 
  Country: None (occurrence: None)
  Receive Date: 20070927
  Receipt Date: 20070918
  Transmission Date: 20080115
  Serious: Yes (Death, Disabling, Other)
  Sender: FDA-Public Use
  Company Number: PHHO2007BR15627

PATIENT
  Age: 83 Year
  Sex: Male
  Weight: 81 kg

DRUGS (7)
  1. CILOSTAZOL [Concomitant]
  2. TRENTAL [Concomitant]
  3. NOVONORM [Concomitant]
     Indication: DIABETES MELLITUS
  4. MELILOTUS OFFICINALIS [Concomitant]
  5. ASPIRIN [Concomitant]
  6. SENNA [Concomitant]
     Indication: CONSTIPATION
  7. DIOVAN HCT [Suspect]
     Indication: HYPERTENSION
     Dosage: 160/12.5 MG
     Route: 048

REACTIONS (10)
  - BEDRIDDEN [None]
  - BLOOD PRESSURE INCREASED [None]
  - DEPRESSION [None]
  - GAIT DISTURBANCE [None]
  - MALNUTRITION [None]
  - MULTI-ORGAN FAILURE [None]
  - OEDEMA GENITAL [None]
  - PROSTATE CANCER [None]
  - RESORPTION BONE INCREASED [None]
  - SKIN CANCER [None]
